FAERS Safety Report 10512019 (Version 3)
Quarter: 2014Q4

REPORT INFORMATION
  Report Type: Spontaneous
  Country: JP (occurrence: JP)
  Receive Date: 20141010
  Receipt Date: 20141024
  Transmission Date: 20150528
  Serious: Yes (Death, Hospitalization)
  Sender: FDA-Public Use
  Company Number: JP-JNJFOC-20140912337

PATIENT
  Age: 76 Year
  Sex: Male

DRUGS (19)
  1. NOVORAPID [Concomitant]
     Active Substance: INSULIN ASPART
     Dosage: 8X1, 10X1, 6X1 (UNITS)
     Route: 058
     Dates: start: 201303, end: 20140905
  2. REMICADE [Suspect]
     Active Substance: INFLIXIMAB
     Indication: COLITIS ULCERATIVE
     Route: 042
     Dates: start: 20140822, end: 20140822
  3. PREDONINE [Suspect]
     Active Substance: PREDNISOLONE\PREDNISOLONE ACETATE\PREDNISOLONE SODIUM SUCCINATE
     Indication: COLITIS ULCERATIVE
     Route: 048
     Dates: end: 20140509
  4. AMLODIPINE BESILATE [Concomitant]
     Active Substance: AMLODIPINE BESYLATE
     Dosage: TELMISARTAN 40 MG X1 AND AMLODIPINE 5 MG X1
     Route: 048
     Dates: start: 201209, end: 20140907
  5. BIOFERMIN R [Concomitant]
     Active Substance: BACILLUS SUBTILIS\LACTOBACILLUS ACIDOPHILUS\STREPTOCOCCUS FAECAIS
     Dosage: 8X1, 10X1, 6X1 (UNITS)
     Route: 048
     Dates: start: 20130719, end: 20140907
  6. BAYASPIRIN [Concomitant]
     Active Substance: ASPIRIN
     Dosage: 8X1, 10X1, 6X1 (UNITS)
     Route: 048
     Dates: start: 20140708, end: 20140907
  7. REMICADE [Suspect]
     Active Substance: INFLIXIMAB
     Indication: COLITIS ULCERATIVE
     Route: 042
     Dates: start: 20131211
  8. ASACOL [Concomitant]
     Active Substance: MESALAMINE
     Dosage: 8X1, 10X1, 6X1 (UNITS)
     Route: 048
     Dates: start: 20130722, end: 20140907
  9. NEXIUM [Concomitant]
     Active Substance: ESOMEPRAZOLE MAGNESIUM
     Dosage: 8X1, 10X1, 6X1 (UNITS)
     Route: 048
     Dates: start: 201308, end: 20140907
  10. REMICADE [Suspect]
     Active Substance: INFLIXIMAB
     Indication: COLITIS ULCERATIVE
     Route: 042
     Dates: start: 20140630, end: 20140630
  11. URSO [Concomitant]
     Active Substance: URSODIOL
     Dosage: 8X1, 10X1, 6X1 (UNITS)
     Route: 048
     Dates: start: 201312, end: 20140907
  12. PREDONINE [Suspect]
     Active Substance: PREDNISOLONE\PREDNISOLONE ACETATE\PREDNISOLONE SODIUM SUCCINATE
     Indication: COLITIS ULCERATIVE
     Route: 048
     Dates: start: 20140602, end: 20140822
  13. PLAVIX [Concomitant]
     Active Substance: CLOPIDOGREL BISULFATE
     Dosage: 8X1, 10X1, 6X1 (UNITS)
     Route: 048
     Dates: start: 20140708, end: 20140907
  14. SIGMART [Concomitant]
     Active Substance: NICORANDIL
     Dosage: 8X1, 10X1, 6X1 (UNITS)
     Route: 048
     Dates: end: 20140907
  15. METOPROLOL [Concomitant]
     Active Substance: METOPROLOL
     Dosage: 8X1, 10X1, 6X1 (UNITS)
     Route: 048
     Dates: end: 20140907
  16. REMICADE [Suspect]
     Active Substance: INFLIXIMAB
     Indication: COLITIS ULCERATIVE
     Route: 042
     Dates: start: 20140509
  17. REMICADE [Suspect]
     Active Substance: INFLIXIMAB
     Indication: COLITIS ULCERATIVE
     Route: 042
     Dates: start: 20140318
  18. LANTUS [Concomitant]
     Active Substance: INSULIN GLARGINE
     Dosage: 8X1, 10X1, 6X1 (UNITS)
     Route: 058
     Dates: start: 201303, end: 20140907
  19. VILDAGLIPTIN [Concomitant]
     Active Substance: VILDAGLIPTIN
     Dosage: 8X1, 10X1, 6X1 (UNITS)
     Route: 048
     Dates: start: 20130315, end: 20140907

REACTIONS (2)
  - Angina unstable [Unknown]
  - Pneumonia [Fatal]

NARRATIVE: CASE EVENT DATE: 20140827
